FAERS Safety Report 10342673 (Version 1)
Quarter: 2014Q3

REPORT INFORMATION
  Report Type: Spontaneous
  Country: US (occurrence: None)
  Receive Date: 20140724
  Receipt Date: 20140724
  Transmission Date: 20150326
  Serious: Yes (Life-Threatening)
  Sender: FDA-Public Use
  Company Number: None

PATIENT
  Age: 35 Year
  Sex: Male
  Weight: 73.48 kg

DRUGS (4)
  1. APREPITANT [Concomitant]
     Active Substance: APREPITANT
  2. GRANISETRON [Concomitant]
     Active Substance: GRANISETRON
  3. OXALIPLATIN. [Suspect]
     Active Substance: OXALIPLATIN
     Indication: COLON CANCER
     Dosage: 110MG?EVERY 2 WEEKS?INTRAVENOUS ??THERAPY ?UNTIL PROGRESSION
     Route: 042
  4. DEXAMETHASONE. [Concomitant]
     Active Substance: DEXAMETHASONE

REACTIONS (5)
  - Chest pain [None]
  - Nausea [None]
  - Flushing [None]
  - Paraesthesia [None]
  - Vomiting [None]

NARRATIVE: CASE EVENT DATE: 20140709
